FAERS Safety Report 10201866 (Version 1)
Quarter: 2014Q2

REPORT INFORMATION
  Report Type: Spontaneous
  Country: US (occurrence: US)
  Receive Date: 20140528
  Receipt Date: 20140528
  Transmission Date: 20141212
  Serious: No
  Sender: FDA-Public Use
  Company Number: US-BRISTOL-MYERS SQUIBB COMPANY-19502509

PATIENT
  Age: 67 Year
  Sex: Female

DRUGS (2)
  1. GLUCOPHAGE [Suspect]
     Indication: DIABETES MELLITUS
     Dates: start: 1999
  2. METFORMIN HCL [Suspect]
     Indication: DIABETES MELLITUS
     Dates: start: 1999

REACTIONS (2)
  - Gastrointestinal disorder [Unknown]
  - Hepatic enzyme increased [Unknown]
